FAERS Safety Report 7163081-0 (Version None)
Quarter: 2010Q4

REPORT INFORMATION
  Report Type: 
  Country: None (occurrence: None)
  Receive Date: 20101215
  Receipt Date: 20100223
  Transmission Date: 20110411
  Serious: Yes (Other)
  Sender: FDA-Public Use
  Company Number: GB-PFIZER INC-2010023066

PATIENT
  Age: 62 Year
  Sex: Female

DRUGS (2)
  1. PREGABALIN [Suspect]
     Indication: NEURALGIA
     Dosage: 100 (VARYING DOSE) 3 TIMES DAILY
     Route: 048
     Dates: start: 20090901
  2. REBIF [Suspect]
     Indication: RELAPSING-REMITTING MULTIPLE SCLEROSIS
     Dosage: 22 UG, WEEKLY

REACTIONS (2)
  - LEUKOPENIA [None]
  - NEUTROPENIA [None]
